FAERS Safety Report 6543574-7 (Version None)
Quarter: 2010Q1

REPORT INFORMATION
  Report Type: 
  Country: None (occurrence: None)
  Receive Date: 20100120
  Receipt Date: 20100115
  Transmission Date: 20100710
  Serious: Yes (Life-Threatening)
  Sender: FDA-Public Use
  Company Number: DE-BRISTOL-MYERS SQUIBB COMPANY-14936843

PATIENT
  Age: 71 Year
  Sex: Male
  Weight: 75 kg

DRUGS (10)
  1. CETUXIMAB [Suspect]
     Indication: NON-SMALL CELL LUNG CANCER
     Dosage: LAST DOSE: 30DEC09; DAY ONE ON CYCLE ONE;FOLLOWED BY WEEKLY DOSE: 250MG/M2
     Route: 042
     Dates: start: 20091203, end: 20091203
  2. CISPLATIN [Suspect]
     Indication: NON-SMALL CELL LUNG CANCER
     Dosage: LAST DOSE: 23DEC09
     Route: 042
     Dates: start: 20091203
  3. PEMETREXED DISODIUM [Suspect]
     Indication: NON-SMALL CELL LUNG CANCER
     Dosage: FORM: VIAL, LAST DOSE: 23DEC09
     Route: 042
     Dates: start: 20091203
  4. FOLIC ACID [Concomitant]
     Dates: start: 20091126
  5. VITAMIN B-12 [Concomitant]
     Dates: start: 20091125
  6. CORTICOSTEROID [Concomitant]
     Dates: start: 20091202
  7. ANTIHISTAMINE NOS [Concomitant]
     Dates: start: 20091203
  8. CEFOTAXIME SODIUM [Concomitant]
     Dates: start: 20091126
  9. NOVALGIN [Concomitant]
     Indication: PAIN
     Dates: start: 20091126
  10. METOCLOPRAMIDE HCL [Concomitant]
     Indication: NAUSEA
     Dates: start: 20091223

REACTIONS (1)
  - INTRACARDIAC THROMBUS [None]
